FAERS Safety Report 6994258-2 (Version None)
Quarter: 2010Q3

REPORT INFORMATION
  Report Type: 
  Country: None (occurrence: None)
  Receive Date: 20100917
  Receipt Date: 20080416
  Transmission Date: 20110219
  Serious: Yes (Other)
  Sender: FDA-Public Use
  Company Number: US-ASTRAZENECA-2006UW11932

PATIENT
  Age: 17491 Day
  Sex: Female
  Weight: 122.5 kg

DRUGS (5)
  1. SEROQUEL [Suspect]
     Indication: DEPRESSION
     Route: 048
     Dates: start: 20020502
  2. SEROQUEL [Suspect]
     Route: 048
  3. RISPERDAL [Concomitant]
  4. ZOLOFT [Concomitant]
     Route: 048
     Dates: start: 19960628
  5. DEPAKOTE E [Concomitant]
     Dates: start: 20020502

REACTIONS (3)
  - DIABETES MELLITUS [None]
  - DIABETES MELLITUS INADEQUATE CONTROL [None]
  - DIABETIC KETOACIDOSIS [None]
